FAERS Safety Report 6377429-8 (Version None)
Quarter: 2009Q3

REPORT INFORMATION
  Report Type: 
  Country: None (occurrence: None)
  Receive Date: 20090923
  Receipt Date: 20090923
  Transmission Date: 20100115
  Serious: Yes (Hospitalization)
  Sender: FDA-Public Use
  Company Number: None

PATIENT
  Age: 24 Year
  Sex: Female
  Weight: 52.6 kg

DRUGS (2)
  1. IBUPROFEN [Suspect]
     Indication: TOOTHACHE
     Dosage: 400MG PO TID
     Route: 048
     Dates: start: 20090605, end: 20090619
  2. TYLENOL (CAPLET) [Concomitant]

REACTIONS (7)
  - ASCITES [None]
  - HAEMOGLOBIN DECREASED [None]
  - HYPOALBUMINAEMIA [None]
  - PLEURAL EFFUSION [None]
  - SINUS BRADYCARDIA [None]
  - TRANSAMINASES INCREASED [None]
  - UPPER GASTROINTESTINAL HAEMORRHAGE [None]
